FAERS Safety Report 23836513 (Version 1)
Quarter: 2024Q2

REPORT INFORMATION
  Report Type: Report from Study
  Country: NL (occurrence: NL)
  Receive Date: 20240509
  Receipt Date: 20240509
  Transmission Date: 20240715
  Serious: Yes (Death, Hospitalization, Other)
  Sender: FDA-Public Use
  Company Number: NL-SA-2019SA184027

PATIENT
  Age: 74 Year

DRUGS (1)
  1. DUPILUMAB [Suspect]
     Active Substance: DUPILUMAB
     Indication: Dermatitis atopic
     Dosage: 300 MG, QOW
     Route: 065
     Dates: start: 20181017, end: 20200901

REACTIONS (15)
  - Pneumonia [Fatal]
  - Condition aggravated [Fatal]
  - Crohn^s disease [Fatal]
  - Colitis [Fatal]
  - Clostridial infection [Fatal]
  - Decubitus ulcer [Fatal]
  - COVID-19 [Fatal]
  - Physical deconditioning [Fatal]
  - Pneumothorax [Unknown]
  - Injection site reaction [Unknown]
  - Gastrointestinal disorder [Unknown]
  - Ocular hyperaemia [Unknown]
  - Eye pruritus [Unknown]
  - Alopecia [Unknown]
  - Genital burning sensation [Unknown]

NARRATIVE: CASE EVENT DATE: 20200101
